FAERS Safety Report 14018655 (Version 1)
Quarter: 2017Q3

REPORT INFORMATION
  Report Type: Spontaneous
  Country: US (occurrence: None)
  Receive Date: 20170926
  Receipt Date: 20170926
  Transmission Date: 20171128
  Serious: Yes (Hospitalization)
  Sender: FDA-Public Use
  Company Number: None

PATIENT
  Age: 54 Year
  Sex: Male
  Weight: 109.77 kg

DRUGS (1)
  1. ASPIRIN. [Suspect]
     Active Substance: ASPIRIN
     Route: 048

REACTIONS (5)
  - Blood pressure decreased [None]
  - Dizziness [None]
  - Bleeding varicose vein [None]
  - Melaena [None]
  - Asthenia [None]

NARRATIVE: CASE EVENT DATE: 20170119
